FAERS Safety Report 12583078 (Version 2)
Quarter: 2016Q3

REPORT INFORMATION
  Report Type: Spontaneous
  Country: CA (occurrence: CA)
  Receive Date: 20160722
  Receipt Date: 20160920
  Transmission Date: 20161109
  Serious: Yes (Other)
  Sender: FDA-Public Use
  Company Number: CA-THE MEDICINES COMPANY-CA-MDCO-16-00292

PATIENT
  Age: 10 Year
  Sex: Female

DRUGS (5)
  1. PANTOPRAZOLE [Concomitant]
     Active Substance: PANTOPRAZOLE SODIUM
     Indication: GASTROINTESTINAL DISORDER
     Route: 042
     Dates: start: 20160705
  2. ANGIOMAX [Suspect]
     Active Substance: BIVALIRUDIN
     Indication: THROMBOLYSIS
     Dosage: 0.3 MG/KG/HOUR
     Route: 042
     Dates: start: 20160708, end: 20160908
  3. VANCOMYCIN [Suspect]
     Active Substance: VANCOMYCIN
     Indication: ABDOMINAL INFECTION
     Dosage: NOT REPORTED
     Route: 042
     Dates: start: 20160706, end: 20160731
  4. TOBRAMYCIN. [Concomitant]
     Active Substance: TOBRAMYCIN
     Indication: ABDOMINAL INFECTION
     Dosage: NOT REPORTED
     Route: 042
     Dates: start: 20160705
  5. TAZOCIN [Concomitant]
     Active Substance: PIPERACILLIN SODIUM\TAZOBACTAM SODIUM
     Indication: ABDOMINAL INFECTION
     Dosage: NOT REPORTED
     Dates: start: 20160706

REACTIONS (3)
  - White blood cell count decreased [Recovered/Resolved]
  - Off label use [Unknown]
  - Neutropenia [Recovered/Resolved]

NARRATIVE: CASE EVENT DATE: 20160712
